FAERS Safety Report 5768175-X (Version None)
Quarter: 2008Q2

REPORT INFORMATION
  Report Type: 
  Country: None (occurrence: None)
  Receive Date: 20080612
  Receipt Date: 20080605
  Transmission Date: 20081010
  Serious: Yes (Life-Threatening, Hospitalization)
  Sender: FDA-Public Use
  Company Number: DE-AMGEN-UK269104

PATIENT
  Sex: Male

DRUGS (5)
  1. NEULASTA [Suspect]
     Indication: CHEMOTHERAPY
     Route: 058
     Dates: start: 20080206, end: 20080206
  2. CYCLOPHOSPHAMIDE [Concomitant]
     Route: 065
     Dates: start: 20080205, end: 20080205
  3. DOXORUBICIN HCL [Concomitant]
     Route: 042
     Dates: start: 20080205, end: 20080205
  4. UROMITEXAN [Concomitant]
     Route: 042
     Dates: start: 20080205, end: 20080205
  5. ZOFRAN [Concomitant]
     Route: 065
     Dates: start: 20080205, end: 20080205

REACTIONS (1)
  - DRUG INEFFECTIVE [None]
